FAERS Safety Report 22041026 (Version 1)
Quarter: 2023Q1

REPORT INFORMATION
  Report Type: Spontaneous
  Country: US (occurrence: None)
  Receive Date: 20230226
  Receipt Date: 20230226
  Transmission Date: 20230418
  Serious: Yes (unspecified)
  Sender: FDA-Public Use
  Company Number: None

PATIENT
  Age: 55 Year
  Sex: Female
  Weight: 65.7 kg

DRUGS (12)
  1. CEQUA [Suspect]
     Active Substance: CYCLOSPORINE
     Indication: Keratitis
     Dosage: OTHER QUANTITY : 10 DROP(S);?FREQUENCY : TWICE A DAY;?
     Route: 047
     Dates: start: 20230220, end: 20230222
  2. LEVOTHYROXINE [Concomitant]
     Active Substance: LEVOTHYROXINE
  3. GABAPENTIN [Concomitant]
     Active Substance: GABAPENTIN
  4. TOPIRAMATE [Concomitant]
     Active Substance: TOPIRAMATE
  5. NURTEC ODT [Concomitant]
     Active Substance: RIMEGEPANT SULFATE
  6. LISINOPRIL [Concomitant]
     Active Substance: LISINOPRIL
  7. HYDROXYZINE [Concomitant]
     Active Substance: HYDROXYZINE HYDROCHLORIDE
  8. PLAQUENIL [Concomitant]
     Active Substance: HYDROXYCHLOROQUINE SULFATE
  9. PREVENTA MIGRAINE [Concomitant]
  10. PHYSILLUM HUSK [Concomitant]
  11. CHONDROITIN SULFATE (BOVINE)\GLUCOSAMINE HYDROCHLORIDE [Concomitant]
     Active Substance: CHONDROITIN SULFATE (BOVINE)\GLUCOSAMINE HYDROCHLORIDE
  12. PREBIOTIC [Concomitant]

REACTIONS (7)
  - Swelling of eyelid [None]
  - Photophobia [None]
  - Instillation site irritation [None]
  - Drug hypersensitivity [None]
  - Lacrimation increased [None]
  - Eyelid ptosis [None]
  - Therapy cessation [None]

NARRATIVE: CASE EVENT DATE: 20230222
